FAERS Safety Report 5553881-2 (Version None)
Quarter: 2007Q4

REPORT INFORMATION
  Report Type: 
  Country: None (occurrence: None)
  Receive Date: 20071212
  Receipt Date: 20071212
  Transmission Date: 20080405
  Serious: Yes (Hospitalization)
  Sender: FDA-Public Use
  Company Number: None

PATIENT
  Sex: Female
  Weight: 79.3795 kg

DRUGS (1)
  1. CHANTIX [Suspect]
     Indication: SMOKING CESSATION THERAPY
     Dosage: 1MG BID PO
     Route: 048
     Dates: start: 20060830, end: 20061130

REACTIONS (5)
  - CARDIAC FAILURE CONGESTIVE [None]
  - DYSPNOEA [None]
  - OEDEMA [None]
  - RASH [None]
  - WEIGHT INCREASED [None]
